FAERS Safety Report 13627447 (Version 1)
Quarter: 2017Q2

REPORT INFORMATION
  Report Type: Spontaneous
  Country: US (occurrence: US)
  Receive Date: 20170531
  Receipt Date: 20170531
  Transmission Date: 20170830
  Serious: Yes (Death)
  Sender: FDA-Public Use
  Company Number: US-ASTELLAS-1487766

PATIENT
  Age: 79 Year
  Sex: Female
  Weight: 46.7 kg

DRUGS (1)
  1. TARCEVA [Suspect]
     Active Substance: ERLOTINIB HYDROCHLORIDE
     Indication: NEOPLASM MALIGNANT
     Route: 048
     Dates: start: 20140408

REACTIONS (1)
  - Neoplasm malignant [Fatal]

NARRATIVE: CASE EVENT DATE: 20140901
